FAERS Safety Report 4290098-6 (Version None)
Quarter: 2004Q1

REPORT INFORMATION
  Report Type: 
  Country: None (occurrence: None)
  Receive Date: 20040206
  Receipt Date: 20040129
  Transmission Date: 20041129
  Serious: Yes (Other)
  Sender: FDA-Public Use
  Company Number: HQWYE337225AUG03

PATIENT
  Age: 67 Year
  Sex: Female

DRUGS (5)
  1. CORDAREX (AMIODARONE, TABLET) [Suspect]
     Indication: ATRIAL FIBRILLATION
     Dosage: 200 MG 1 X PER 1 DAY, ORAL
     Route: 048
     Dates: start: 20010101, end: 20020725
  2. ATACAND [Concomitant]
  3. ESIDRIX [Concomitant]
  4. METOPROLOL SUCCINATE [Concomitant]
  5. IOHEXOL (IOHEXOL) [Concomitant]

REACTIONS (7)
  - ALOPECIA [None]
  - ARTHROPATHY [None]
  - CHROMATOPSIA [None]
  - DIARRHOEA [None]
  - HYPERTHYROIDISM [None]
  - IODINE UPTAKE INCREASED [None]
  - VISION BLURRED [None]
